FAERS Safety Report 9443586 (Version 3)
Quarter: 2013Q3

REPORT INFORMATION
  Report Type: Report from Study
  Country: US (occurrence: US)
  Receive Date: 20130806
  Receipt Date: 20130909
  Transmission Date: 20140515
  Serious: Yes (Hospitalization)
  Sender: FDA-Public Use
  Company Number: US-ALEXION-A201301785

PATIENT
  Age: 24 Year
  Sex: Female
  Weight: 106.58 kg

DRUGS (17)
  1. ECULIZUMAB [Suspect]
     Indication: HAEMOLYTIC URAEMIC SYNDROME
     Dosage: UNK
     Route: 042
  2. NORVASC [Concomitant]
  3. IMURAN [Concomitant]
  4. COREG [Concomitant]
  5. CINACALCET [Concomitant]
  6. CELEXA [Concomitant]
  7. CLONIDINE [Concomitant]
  8. DILTIAZEM [Concomitant]
  9. VITAMIN D [Concomitant]
  10. FLUCONAZOLE [Concomitant]
  11. ATIVAN [Concomitant]
  12. MINOXIDIL [Concomitant]
  13. PROTONIX [Concomitant]
  14. PROGRAF [Concomitant]
  15. DIOVAN [Concomitant]
  16. PREDNISONE [Concomitant]
  17. AMBIEN [Concomitant]

REACTIONS (1)
  - Renal impairment [Recovered/Resolved]
